FAERS Safety Report 25452740 (Version 1)
Quarter: 2025Q2

REPORT INFORMATION
  Report Type: Spontaneous
  Country: US (occurrence: US)
  Receive Date: 20250618
  Receipt Date: 20250618
  Transmission Date: 20250716
  Serious: No
  Sender: AMPHASTAR
  Company Number: US-Amphastar Pharmaceuticals, Inc.-2178970

PATIENT
  Sex: Female

DRUGS (1)
  1. BAQSIMI [Suspect]
     Active Substance: GLUCAGON
     Indication: Blood glucose decreased

REACTIONS (5)
  - Device power source issue [Recovered/Resolved]
  - Administration site pain [Recovered/Resolved]
  - Facial pain [Recovered/Resolved]
  - Pain [Recovered/Resolved]
  - Device issue [Recovered/Resolved]
